FAERS Safety Report 16054922 (Version 1)
Quarter: 2019Q1

REPORT INFORMATION
  Report Type: Spontaneous
  Country: FR (occurrence: FR)
  Receive Date: 20190310
  Receipt Date: 20190310
  Transmission Date: 20190418
  Serious: Yes (Life-Threatening)
  Sender: FDA-Public Use
  Company Number: FR-ACCORD-110991

PATIENT
  Age: 86 Year
  Sex: Male
  Weight: 108 kg

DRUGS (5)
  1. BICALUTAMIDE. [Suspect]
     Active Substance: BICALUTAMIDE
     Indication: PROSTATE CANCER
     Route: 048
     Dates: start: 20180522
  2. CIPROFLOXACIN/CIPROFLOXACIN HYDROCHLORIDE/CIPROFLOXACIN LACTATE [Suspect]
     Active Substance: CIPROFLOXACIN
     Indication: PROSTATITIS
     Route: 048
     Dates: start: 201807, end: 20180806
  3. CEFIXIME\CEFIXIME TRIHYDRATE [Suspect]
     Active Substance: CEFIXIME
     Indication: PROSTATITIS
     Route: 048
     Dates: start: 20180806, end: 20180807
  4. TAMOXIFEN [Suspect]
     Active Substance: TAMOXIFEN
     Indication: PROSTATE CANCER
     Route: 048
     Dates: start: 20180522
  5. XATRAL [Suspect]
     Active Substance: ALFUZOSIN
     Indication: PROSTATE CANCER
     Dosage: STRENGTH: 10 MG
     Route: 048
     Dates: start: 20180522

REACTIONS (2)
  - Torsade de pointes [Not Recovered/Not Resolved]
  - Cardiac arrest [Recovered/Resolved]

NARRATIVE: CASE EVENT DATE: 20180807
